FAERS Safety Report 4295750-4 (Version None)
Quarter: 2004Q1

REPORT INFORMATION
  Report Type: 
  Country: None (occurrence: None)
  Receive Date: 20040216
  Receipt Date: 20031027
  Transmission Date: 20041129
  Serious: No
  Sender: FDA-Public Use
  Company Number: US-GLAXOSMITHKLINE-A0431730A

PATIENT
  Age: 71 Year
  Sex: Male

DRUGS (4)
  1. LAMICTAL [Suspect]
     Dosage: 150MG AT NIGHT
     Route: 048
     Dates: start: 20030901
  2. ZOLOFT [Concomitant]
  3. MICRONASE [Concomitant]
  4. KLONOPIN [Concomitant]

REACTIONS (1)
  - CONSTIPATION [None]
